FAERS Safety Report 23711540 (Version 1)
Quarter: 2024Q2

REPORT INFORMATION
  Report Type: Spontaneous
  Country: US (occurrence: US)
  Receive Date: 20240405
  Receipt Date: 20240405
  Transmission Date: 20240715
  Serious: Yes (Hospitalization)
  Sender: FDA-Public Use
  Company Number: US-BAUSCH-BL-2024-005317

PATIENT
  Age: 43 Year
  Sex: Male

DRUGS (2)
  1. UCERIS [Suspect]
     Active Substance: BUDESONIDE
     Indication: Colitis ulcerative
     Dosage: DAILY
     Route: 065
     Dates: start: 202310
  2. UCERIS [Suspect]
     Active Substance: BUDESONIDE
     Route: 065
     Dates: start: 202403

REACTIONS (2)
  - Hospitalisation [Unknown]
  - Device issue [Unknown]

NARRATIVE: CASE EVENT DATE: 20240305
